FAERS Safety Report 5759296-6 (Version None)
Quarter: 2008Q2

REPORT INFORMATION
  Report Type: 
  Country: None (occurrence: None)
  Receive Date: 20080604
  Receipt Date: 20080527
  Transmission Date: 20081010
  Serious: Yes (Death)
  Sender: FDA-Public Use
  Company Number: US-GENENTECH-261703

PATIENT
  Sex: Male
  Weight: 69 kg

DRUGS (7)
  1. PLACEBO [Suspect]
     Indication: NON-SMALL CELL LUNG CANCER
     Dosage: 780 MG, UNK
     Route: 042
     Dates: start: 20080311, end: 20080428
  2. AVASTIN [Suspect]
     Indication: NON-SMALL CELL LUNG CANCER
     Dosage: 1035 MG, UNK
     Route: 042
     Dates: start: 20080311, end: 20080428
  3. PACLITAXEL [Suspect]
     Indication: NON-SMALL CELL LUNG CANCER
     Dosage: 360 MG, UNK
     Route: 042
     Dates: start: 20080311, end: 20080428
  4. CARBOPLATIN [Suspect]
     Indication: NON-SMALL CELL LUNG CANCER
     Dosage: 634 MG, UNK
     Route: 042
     Dates: start: 20080311, end: 20080428
  5. CODEINE SUL TAB [Concomitant]
     Indication: PAIN
     Route: 048
  6. SENOKOT [Concomitant]
     Indication: CONSTIPATION
  7. COLACE [Concomitant]
     Indication: CONSTIPATION

REACTIONS (1)
  - DEATH [None]
